FAERS Safety Report 14572474 (Version 1)
Quarter: 2018Q1

REPORT INFORMATION
  Report Type: Spontaneous
  Country: US (occurrence: US)
  Receive Date: 20180223
  Receipt Date: 20180223
  Transmission Date: 20180509
  Serious: Yes (Hospitalization)
  Sender: FDA-Public Use
  Company Number: None

PATIENT
  Age: 16 Year
  Sex: Male
  Weight: 60.8 kg

DRUGS (4)
  1. ADVATE [Suspect]
     Active Substance: ANTIHEMOPHILIC FACTOR, HUMAN RECOMBINANT
     Indication: HAEMOPHILIA
     Dosage: ?          OTHER FREQUENCY:TUESDAY/FRIDAY;?
     Route: 040
     Dates: start: 20080502, end: 20180223
  2. CHILDREN^S MULTIVITAMIN [Concomitant]
  3. ADVATE [Suspect]
     Active Substance: ANTIHEMOPHILIC FACTOR, HUMAN RECOMBINANT
     Indication: FACTOR VIII DEFICIENCY
     Dosage: ?          OTHER FREQUENCY:TUESDAY/FRIDAY;?
     Route: 040
     Dates: start: 20080502, end: 20180223
  4. VIVANSE 50MG 1 TAB DAILY [Concomitant]

REACTIONS (5)
  - Plasmin inhibitor [None]
  - Limb injury [None]
  - Peripheral swelling [None]
  - Haemorrhage [None]
  - Drug ineffective [None]

NARRATIVE: CASE EVENT DATE: 20180211
